FAERS Safety Report 23269572 (Version 1)
Quarter: 2023Q4

REPORT INFORMATION
  Report Type: Spontaneous
  Country: TR (occurrence: TR)
  Receive Date: 20231207
  Receipt Date: 20231207
  Transmission Date: 20240109
  Serious: Yes (Other)
  Sender: FDA-Public Use
  Company Number: TR-002147023-NVSC2023TR256472

PATIENT
  Sex: Male

DRUGS (1)
  1. TRILEPTAL [Suspect]
     Active Substance: OXCARBAZEPINE
     Indication: Epilepsy
     Dosage: 1.5 DOSAGE FORM, BID (1.5 DOSAGE FORM IN THE MORNING AND 1.5 DOSAGE FORM IN EVENING))
     Route: 065

REACTIONS (5)
  - Paralysis [Unknown]
  - Jaundice [Unknown]
  - Seizure [Unknown]
  - Dyspnoea [Unknown]
  - Product availability issue [Unknown]
